FAERS Safety Report 23287551 (Version 1)
Quarter: 2023Q4

REPORT INFORMATION
  Report Type: Spontaneous
  Country: US (occurrence: None)
  Receive Date: 20231212
  Receipt Date: 20231212
  Transmission Date: 20240110
  Serious: Yes (Hospitalization)
  Sender: FDA-Public Use
  Company Number: None

PATIENT
  Sex: Female

DRUGS (2)
  1. AFINITOR [Suspect]
     Active Substance: EVEROLIMUS
     Dosage: FREQUENCY : DAILY;?
     Route: 048
     Dates: start: 202311
  2. PIQRAY DAILY DOSE [Concomitant]

REACTIONS (12)
  - Hypersensitivity [None]
  - Gingival pain [None]
  - Gingival bleeding [None]
  - Viral infection [None]
  - Dysphagia [None]
  - Gingival discomfort [None]
  - Gingival blister [None]
  - Stomatitis [None]
  - Weight decreased [None]
  - Dyspnoea [None]
  - Positron emission tomogram normal [None]
  - Fatigue [None]
